FAERS Safety Report 8774490 (Version 1)
Quarter: 2012Q4

REPORT INFORMATION
  Report Type: 
  Country: BR (occurrence: BR)
  Receive Date: 20120907
  Receipt Date: 20120907
  Transmission Date: 20130627
  Serious: Yes (Other)
  Sender: FDA-Public Use
  Company Number: BR-AMGEN-BRASP2012049020

PATIENT
  Age: 24 Year
  Sex: Male
  Weight: 40 kg

DRUGS (3)
  1. ENBREL [Suspect]
     Indication: RHEUMATOID ARTHRITIS
     Dosage: 50 mg, once weekly
     Route: 058
     Dates: start: 201110
  2. PREDNISONE [Concomitant]
     Dosage: 10 mg, UNK
  3. DURATESTON [Concomitant]
     Indication: HORMONE REPLACEMENT THERAPY
     Dosage: 1 ampoule monthly

REACTIONS (5)
  - Needle issue [Unknown]
  - Rheumatoid arthritis [Unknown]
  - Pyrexia [Unknown]
  - Drug hypersensitivity [Unknown]
  - Injection site pain [Unknown]
